FAERS Safety Report 8885937 (Version 1)
Quarter: 2012Q4

REPORT INFORMATION
  Report Type: 
  Country: US (occurrence: US)
  Receive Date: 20121105
  Receipt Date: 20121105
  Transmission Date: 20130627
  Serious: No
  Sender: FDA-Public Use
  Company Number: US-PFIZER INC-2012274364

PATIENT
  Sex: Female
  Weight: 52.61 kg

DRUGS (6)
  1. ZOLOFT [Suspect]
     Indication: DEPRESSION
     Dosage: UNK
  2. XANAX [Suspect]
     Indication: PANIC DISORDER
     Dosage: 2 mg, 3x/day
     Dates: start: 1995, end: 1996
  3. XANAX [Suspect]
     Indication: ANXIETY
     Dosage: 2 mg, 3x/day
  4. XANAX [Suspect]
     Dosage: 2 mg, 2x/day
  5. PROZAC [Suspect]
     Indication: DEPRESSION
     Dosage: UNK
  6. REMERON [Suspect]
     Indication: DEPRESSION
     Dosage: UNK

REACTIONS (5)
  - Hypotension [Recovered/Resolved]
  - Asthenia [Unknown]
  - Weight increased [Unknown]
  - Insomnia [Unknown]
  - Intentional drug misuse [Unknown]
